FAERS Safety Report 7876101-2 (Version None)
Quarter: 2011Q4

REPORT INFORMATION
  Report Type: 
  Country: None (occurrence: None)
  Receive Date: 20111031
  Receipt Date: 20111024
  Transmission Date: 20120403
  Serious: Yes (Other)
  Sender: FDA-Public Use
  Company Number: FR-JNJFOC-20111012861

PATIENT

DRUGS (23)
  1. DOXORUBICIN HCL [Suspect]
     Route: 042
  2. DOXORUBICIN HCL [Suspect]
     Route: 042
  3. MESNA [Suspect]
     Indication: LYMPHOMA
     Route: 042
  4. DOXORUBICIN HCL [Suspect]
     Indication: LYMPHOMA
     Route: 042
  5. BLEOMYCIN SULFATE [Suspect]
     Route: 042
  6. ELDISINE [Suspect]
     Route: 065
  7. CYCLOPHOSPHAMIDE [Suspect]
     Route: 065
  8. BLEOMYCIN SULFATE [Suspect]
     Indication: LYMPHOMA
     Route: 042
  9. CYCLOPHOSPHAMIDE [Suspect]
     Indication: LYMPHOMA
     Route: 065
  10. ELDISINE [Suspect]
     Route: 065
  11. MESNA [Suspect]
     Route: 042
  12. METHOTREXATE [Suspect]
     Indication: LYMPHOMA
     Route: 037
  13. NEUPOGEN [Concomitant]
     Route: 065
  14. DOXORUBICIN HCL [Suspect]
     Route: 042
  15. MESNA [Suspect]
     Route: 042
  16. MESNA [Suspect]
     Route: 042
  17. ELDISINE [Suspect]
     Indication: LYMPHOMA
     Route: 065
  18. ELDISINE [Suspect]
     Route: 065
  19. BLEOMYCIN SULFATE [Suspect]
     Route: 042
  20. CYCLOPHOSPHAMIDE [Suspect]
     Route: 065
  21. CYCLOPHOSPHAMIDE [Suspect]
     Route: 065
  22. BLEOMYCIN SULFATE [Suspect]
     Route: 042
  23. PREDNISONE [Suspect]
     Indication: LYMPHOMA
     Route: 048

REACTIONS (1)
  - LUNG NEOPLASM MALIGNANT [None]
